FAERS Safety Report 20508253 (Version 2)
Quarter: 2022Q2

REPORT INFORMATION
  Report Type: Spontaneous
  Country: US (occurrence: US)
  Receive Date: 20220223
  Receipt Date: 20220420
  Transmission Date: 20220720
  Serious: No
  Sender: FDA-Public Use
  Company Number: US-TAKEDA-2022TUS011719

PATIENT
  Sex: Female
  Weight: 99 kg

DRUGS (2)
  1. GAMMAGARD LIQUID [Suspect]
     Active Substance: HUMAN IMMUNOGLOBULIN G
     Indication: Immunodeficiency common variable
     Dosage: 10 GRAM
     Route: 065
  2. GAMMAGARD LIQUID [Suspect]
     Active Substance: HUMAN IMMUNOGLOBULIN G
     Dosage: 10 GRAM, 1/WEEK
     Route: 065

REACTIONS (6)
  - Incorrect dose administered [Unknown]
  - Poor quality product administered [Unknown]
  - Liquid product physical issue [Unknown]
  - Product temperature excursion issue [Unknown]
  - Incorrect product administration duration [Unknown]
  - No adverse event [Unknown]
